FAERS Safety Report 5247564-6 (Version None)
Quarter: 2007Q1

REPORT INFORMATION
  Report Type: 
  Country: None (occurrence: None)
  Receive Date: 20070227
  Receipt Date: 20070216
  Transmission Date: 20070707
  Serious: Yes (Other)
  Sender: FDA-Public Use
  Company Number: PHEH2006US15099

PATIENT
  Age: 71 Year
  Sex: Female

DRUGS (17)
  1. FEMARA [Suspect]
     Indication: BREAST CANCER
     Dosage: 2.5 MG, QD
     Route: 048
     Dates: start: 20060905, end: 20070101
  2. HUMALOG [Concomitant]
  3. LANTUS [Concomitant]
  4. TIMOLOL MALEATE [Concomitant]
     Route: 047
  5. TRAVATAN [Concomitant]
  6. LASIX [Concomitant]
  7. LIPITOR [Concomitant]
  8. SPIRONOLACTONE [Concomitant]
  9. XANAX [Concomitant]
  10. PRILOSEC [Concomitant]
  11. NITROGLYCERIN ^PHARMACIA + UPJOHN^ [Concomitant]
     Route: 060
  12. METOPROLOL SUCCINATE [Concomitant]
  13. ASPIRIN [Concomitant]
  14. ASCORBIC ACID [Concomitant]
  15. PLAVIX [Concomitant]
  16. ENALAPRIL MALEATE [Concomitant]
  17. TAMOXIFEN CITRATE [Concomitant]
     Dates: start: 20070101

REACTIONS (1)
  - BLOOD GLUCOSE INCREASED [None]
